FAERS Safety Report 4879337-8 (Version None)
Quarter: 2005Q4

REPORT INFORMATION
  Report Type: 
  Country: None (occurrence: None)
  Receive Date: 20051207
  Receipt Date: 20041027
  Transmission Date: 20060501
  Serious: Yes (Other)
  Sender: FDA-Public Use
  Company Number: 2004084714

PATIENT
  Age: 35 Year
  Sex: Male
  Weight: 78.4723 kg

DRUGS (2)
  1. VIAGRA [Suspect]
     Indication: ILL-DEFINED DISORDER
     Dosage: 400 MG (100 MG), ORAL
     Route: 048
     Dates: start: 20040101
  2. LORAZEPAM [Concomitant]

REACTIONS (9)
  - ANXIETY [None]
  - ERECTION INCREASED [None]
  - FEELING JITTERY [None]
  - GASTROOESOPHAGEAL REFLUX DISEASE [None]
  - INTENTIONAL OVERDOSE [None]
  - PALPITATIONS [None]
  - PARAESTHESIA [None]
  - THROAT IRRITATION [None]
  - VEIN DISORDER [None]
